FAERS Safety Report 15823336 (Version 8)
Quarter: 2020Q1

REPORT INFORMATION
  Report Type: Spontaneous
  Country: US (occurrence: US)
  Receive Date: 20190114
  Receipt Date: 20200319
  Transmission Date: 20200409
  Serious: Yes (Other)
  Sender: FDA-Public Use
  Company Number: US-PFIZER INC-2019015471

PATIENT
  Age: 63 Year
  Sex: Female
  Weight: 61.22 kg

DRUGS (2)
  1. LYRICA [Suspect]
     Active Substance: PREGABALIN
     Indication: NEURALGIA
     Dosage: 200 MG, DAILY (50MG CAPSULE BY MOUTH-1 CAPSULE AT 6:00AM AND 1:00PM, 2 CAPSULES AT NIGHT DAILY)
     Route: 048
     Dates: start: 2018
  2. LYRICA [Suspect]
     Active Substance: PREGABALIN
     Indication: SCIATICA
     Dosage: 50 MG, 3X/DAY
     Dates: start: 201902

REACTIONS (7)
  - Musculoskeletal stiffness [Unknown]
  - Movement disorder [Unknown]
  - Pain [Unknown]
  - Cough [Unknown]
  - Viral infection [Not Recovered/Not Resolved]
  - Drug dependence [Unknown]
  - Malaise [Unknown]

NARRATIVE: CASE EVENT DATE: 2019
